FAERS Safety Report 23355736 (Version 3)
Quarter: 2024Q1

REPORT INFORMATION
  Report Type: Spontaneous
  Country: JP (occurrence: JP)
  Receive Date: 20240102
  Receipt Date: 20240315
  Transmission Date: 20240410
  Serious: Yes (Other)
  Sender: FDA-Public Use
  Company Number: JP-UCBSA-2022063976

PATIENT

DRUGS (2)
  1. CIMZIA [Suspect]
     Active Substance: CERTOLIZUMAB PEGOL
     Indication: Rheumatoid arthritis
     Dosage: UNK, INJ
     Route: 058
  2. METHOTREXATE [Concomitant]
     Active Substance: METHOTREXATE
     Indication: Product used for unknown indication
     Dosage: UNK

REACTIONS (12)
  - Rheumatoid arthritis [Unknown]
  - Pulmonary tuberculosis [Unknown]
  - Pneumonia [Unknown]
  - Diverticulitis [Unknown]
  - Duodenal ulcer [Unknown]
  - Palmoplantar pustulosis [Unknown]
  - Arthritis [Unknown]
  - Eczema [Unknown]
  - Arthralgia [Unknown]
  - Pruritus [Unknown]
  - Rash [Unknown]
  - Fibromyalgia [Unknown]
